FAERS Safety Report 14032284 (Version 1)
Quarter: 2017Q4

REPORT INFORMATION
  Report Type: Spontaneous
  Country: US (occurrence: US)
  Receive Date: 20171002
  Receipt Date: 20171002
  Transmission Date: 20180321
  Serious: No
  Sender: FDA-Public Use
  Company Number: US-PFIZER INC-2017424534

PATIENT
  Age: 40 Year
  Sex: Female

DRUGS (1)
  1. ADVIL MENSTRUAL PAIN [Suspect]
     Active Substance: IBUPROFEN SODIUM
     Indication: DYSMENORRHOEA
     Dosage: UNK

REACTIONS (5)
  - Flatulence [Unknown]
  - Abdominal discomfort [Unknown]
  - Urticaria [Unknown]
  - Abdominal pain upper [Unknown]
  - Drug hypersensitivity [Unknown]
